FAERS Safety Report 20782604 (Version 1)
Quarter: 2022Q2

REPORT INFORMATION
  Report Type: Report from Study
  Country: EG (occurrence: EG)
  Receive Date: 20220504
  Receipt Date: 20220504
  Transmission Date: 20220721
  Serious: Yes (Other)
  Sender: FDA-Public Use
  Company Number: EG-NOVARTISPH-NVSC2022EG099281

PATIENT
  Age: 36 Year
  Sex: Female

DRUGS (11)
  1. ENTRESTO [Suspect]
     Active Substance: SACUBITRIL\VALSARTAN
     Indication: Cardiac failure
     Dosage: 50 MG, BID (1 TABLET)
     Route: 048
     Dates: start: 202007
  2. ENTRESTO [Suspect]
     Active Substance: SACUBITRIL\VALSARTAN
     Dosage: 100 MG, BID  (1 TABLET)
     Route: 048
  3. ENTRESTO [Suspect]
     Active Substance: SACUBITRIL\VALSARTAN
     Dosage: 200 MG, BID  (1 TABLET)
     Route: 048
  4. IVABRADINE [Concomitant]
     Active Substance: IVABRADINE
     Indication: Cardiovascular disorder
     Dosage: 1 DOSAGE FORM, BID (BEFORE MEALS, 3 DAYS AGO)
     Route: 048
  5. CRESTOR [Concomitant]
     Active Substance: ROSUVASTATIN CALCIUM
     Indication: Cardiovascular disorder
     Dosage: 1 DOSAGE FORM, QD (BEFORE SLEEPING, STARTED 3 DAYS AGO)
     Route: 048
  6. PYRIDOXINE HYDROCHLORIDE [Concomitant]
     Active Substance: PYRIDOXINE HYDROCHLORIDE
     Indication: Immune disorder prophylaxis
     Dosage: 1 DOSAGE FORM, QW (AMPOULE, STARTED 3 DAYS AGO)
     Route: 065
  7. TICAGRELOR [Concomitant]
     Active Substance: TICAGRELOR
     Indication: Cardiovascular disorder
     Dosage: 60 MG, BID  (1 TABLET, 3 DAYS AGO STARTED)
     Route: 048
  8. TICAGRELOR [Concomitant]
     Active Substance: TICAGRELOR
     Dosage: 90 MG, BID (1 TABLET, AFTER MEALS)
     Route: 048
     Dates: start: 20211216
  9. ASPIRIN [Concomitant]
     Active Substance: ASPIRIN
     Indication: Haemophilia
     Dosage: 1 DOSAGE FORM, QD (AFTER LUNCH)
     Route: 048
     Dates: start: 20211216
  10. CONTROLOC [Concomitant]
     Active Substance: PANTOPRAZOLE SODIUM
     Dosage: 1 DOSAGE FORM, QD (BEFORE BREAKFAST) INDICATION AS PPI)
     Route: 048
     Dates: start: 20211216
  11. BETACOR [Concomitant]
     Indication: Cardiovascular disorder
     Dosage: 0.5 DOSAGE FORM, BID
     Route: 048
     Dates: start: 20211216

REACTIONS (5)
  - Blood pressure fluctuation [Not Recovered/Not Resolved]
  - Fatigue [Not Recovered/Not Resolved]
  - Dyspnoea [Not Recovered/Not Resolved]
  - Ejection fraction decreased [Unknown]
  - Gastrooesophageal reflux disease [Recovered/Resolved]

NARRATIVE: CASE EVENT DATE: 20220327
